FAERS Safety Report 17072159 (Version 1)
Quarter: 2019Q4

REPORT INFORMATION
  Report Type: Spontaneous
  Country: US (occurrence: US)
  Receive Date: 20191125
  Receipt Date: 20191125
  Transmission Date: 20200122
  Serious: Yes (Hospitalization)
  Sender: FDA-Public Use
  Company Number: US-BAYER-2019-209558

PATIENT
  Age: 94 Year
  Sex: Female

DRUGS (2)
  1. ASPIRIN (PAIN AND FEVER) [Suspect]
     Active Substance: ASPIRIN
     Dosage: UNK
  2. ELIQUIS [Interacting]
     Active Substance: APIXABAN

REACTIONS (2)
  - Labelled drug-drug interaction medication error [None]
  - Haemorrhage [Recovered/Resolved]
